FAERS Safety Report 7210183-6 (Version None)
Quarter: 2010Q4

REPORT INFORMATION
  Report Type: 
  Country: None (occurrence: None)
  Receive Date: 20101223
  Receipt Date: 20101206
  Transmission Date: 20110411
  Serious: Yes (Hospitalization, Other)
  Sender: FDA-Public Use
  Company Number: 2010-3990

PATIENT
  Age: 52 Year
  Sex: Female
  Weight: 56.7 kg

DRUGS (8)
  1. DYSPORT [Suspect]
     Indication: OFF LABEL USE
     Dosage: 50 UNITS (50 UNITS, SINGLE CYCLE), PARENTERAL
     Route: 051
     Dates: start: 20101104, end: 20101104
  2. DYSPORT [Suspect]
     Indication: SKIN WRINKLING
     Dosage: 50 UNITS (50 UNITS, SINGLE CYCLE), PARENTERAL
     Route: 051
     Dates: start: 20101104, end: 20101104
  3. PERLANE (HYALURONIC ACID) [Concomitant]
  4. RESTYLANE (HYALURONIC ACID) [Concomitant]
  5. OBAGI SKIN PRODUCTS (ALL OTHER THERAPEUTIC PRODUCTS) [Concomitant]
  6. ANTIPSYCHOTICS (ANTIPSYCHOTICS) [Concomitant]
  7. DEPRESSION MEDICATIONS (ANTIDEPRESSANTS) [Concomitant]
  8. ANXIETY MEDICATIONS (ANXIOLYTICS) [Concomitant]

REACTIONS (10)
  - AGGRESSION [None]
  - ALCOHOL USE [None]
  - DIPLOPIA [None]
  - DIZZINESS [None]
  - DRUG TOXICITY [None]
  - EMOTIONAL DISORDER [None]
  - HEADACHE [None]
  - OFF LABEL USE [None]
  - REFUSAL OF TREATMENT BY PATIENT [None]
  - SCREAMING [None]
